FAERS Safety Report 13782470 (Version 2)
Quarter: 2017Q3

REPORT INFORMATION
  Report Type: Spontaneous
  Country: US (occurrence: US)
  Receive Date: 20170724
  Receipt Date: 20170830
  Transmission Date: 20171127
  Serious: Yes (Other)
  Sender: FDA-Public Use
  Company Number: US-PFIZER INC-2017317220

PATIENT
  Age: 48 Year
  Sex: Female
  Weight: 57 kg

DRUGS (8)
  1. VALIUM [Concomitant]
     Active Substance: DIAZEPAM
     Indication: MUSCLE SPASMS
  2. NORCO [Concomitant]
     Active Substance: ACETAMINOPHEN\HYDROCODONE BITARTRATE
     Indication: BACK PAIN
     Dosage: 10 MG TABLET, AS NEEDED(UP TO 4 TIMES PER DAY)
     Route: 048
  3. FIORICET [Concomitant]
     Active Substance: ACETAMINOPHEN\BUTALBITAL\CAFFEINE
     Indication: MIGRAINE
     Dosage: 50/325/40 ACTAV TABLET, BY MOUTH, AS NEEDED
     Route: 048
  4. ALAVERT ALLERGY [Suspect]
     Active Substance: LORATADINE
     Indication: SINUS DISORDER
     Dosage: 2X/DAY
     Route: 048
     Dates: start: 20151208, end: 201512
  5. ATENOLOL. [Concomitant]
     Active Substance: ATENOLOL
     Indication: HYPERTENSION
     Dosage: 25 MG (ONE HALF OF A 50MG TABLET), ONCE AT BEDTIME
     Route: 048
     Dates: start: 2007
  6. VALIUM [Concomitant]
     Active Substance: DIAZEPAM
     Indication: NERVOUSNESS
     Dosage: 5MG TABLET, THREE TIMES PER DAY AS NEEDED
     Route: 048
  7. PERCOCET /00446701/ [Concomitant]
     Active Substance: ACETAMINOPHEN\OXYCODONE HYDROCHLORIDE\OXYCODONE TEREPHTHALATE
     Dosage: UNK
  8. ZANAFLEX [Concomitant]
     Active Substance: TIZANIDINE HYDROCHLORIDE

REACTIONS (3)
  - Generalised tonic-clonic seizure [Not Recovered/Not Resolved]
  - Laceration [Recovered/Resolved with Sequelae]
  - Dyskinesia [Unknown]

NARRATIVE: CASE EVENT DATE: 20151209
